FAERS Safety Report 4742147-6 (Version None)
Quarter: 2005Q3

REPORT INFORMATION
  Report Type: 
  Country: None (occurrence: None)
  Receive Date: 20050808
  Receipt Date: 20050725
  Transmission Date: 20060218
  Serious: Yes (Other)
  Sender: FDA-Public Use
  Company Number: 2005109324

PATIENT
  Age: 86 Year
  Sex: Male

DRUGS (2)
  1. TIKOSYN [Suspect]
     Indication: ILL-DEFINED DISORDER
  2. CARDIZEM [Suspect]
     Indication: ILL-DEFINED DISORDER

REACTIONS (1)
  - IMPLANTABLE DEFIBRILLATOR MALFUNCTION [None]
